FAERS Safety Report 6436782-7 (Version None)
Quarter: 2009Q4

REPORT INFORMATION
  Report Type: 
  Country: None (occurrence: None)
  Receive Date: 20091103
  Receipt Date: 20091016
  Transmission Date: 20100525
  Serious: Yes (Other)
  Sender: FDA-Public Use
  Company Number: GAM-150-09-AU

PATIENT
  Age: 48 Year
  Sex: Male

DRUGS (1)
  1. OCTAGAM [Suspect]
     Indication: KIDNEY TRANSPLANT REJECTION
     Dosage: 80 G I.V.
     Route: 042
     Dates: start: 20080919, end: 20080919

REACTIONS (2)
  - ARTERIOVENOUS FISTULA THROMBOSIS [None]
  - DIALYSIS [None]
